FAERS Safety Report 9264132 (Version 3)
Quarter: 2013Q2

REPORT INFORMATION
  Report Type: Spontaneous
  Country: JP (occurrence: JP)
  Receive Date: 20130430
  Receipt Date: 20130516
  Transmission Date: 20140414
  Serious: Yes (Death)
  Sender: FDA-Public Use
  Company Number: JP-CELGENEUS-087-21660-13044816

PATIENT
  Age: 60 Year
  Sex: Male
  Weight: 50 kg

DRUGS (6)
  1. ABRAXANE [Suspect]
     Indication: LUNG CANCER METASTATIC
     Route: 065
     Dates: start: 20130402, end: 20130409
  2. CARBOPLATIN [Suspect]
     Indication: LUNG CANCER METASTATIC
     Route: 041
     Dates: start: 20121210, end: 20130306
  3. CARBOPLATIN [Suspect]
     Route: 041
     Dates: start: 20130402, end: 20130402
  4. EMEND [Concomitant]
     Indication: PRODUCT USED FOR UNKNOWN INDICATION
     Route: 048
     Dates: start: 20130402, end: 20130404
  5. DECADRON [Concomitant]
     Indication: METASTASES TO CENTRAL NERVOUS SYSTEM
     Route: 041
     Dates: start: 20130328, end: 20130413
  6. GLYCEOL [Concomitant]
     Indication: METASTASES TO CENTRAL NERVOUS SYSTEM
     Route: 041
     Dates: start: 20130328, end: 20130413

REACTIONS (2)
  - Neutrophil count decreased [Fatal]
  - Pneumonia [Fatal]
